FAERS Safety Report 17617251 (Version 1)
Quarter: 2020Q2

REPORT INFORMATION
  Report Type: Spontaneous
  Country: US (occurrence: US)
  Receive Date: 20200402
  Receipt Date: 20200402
  Transmission Date: 20200713
  Serious: No
  Sender: FDA-Public Use
  Company Number: US-UNITED THERAPEUTICS-UNT-2020-003114

PATIENT
  Age: 66 Year
  Sex: Female
  Weight: 75.47 kg

DRUGS (4)
  1. WARFARIN [Concomitant]
     Active Substance: WARFARIN
     Indication: PRODUCT USED FOR UNKNOWN INDICATION
     Dosage: UNK
     Route: 065
  2. REMODULIN [Suspect]
     Active Substance: TREPROSTINIL
     Indication: PULMONARY ARTERIAL HYPERTENSION
     Dosage: UNK, CONTINUING
     Route: 058
     Dates: start: 20191127
  3. REMODULIN [Suspect]
     Active Substance: TREPROSTINIL
     Dosage: 0.0345 ?G/KG, CONTINUING
     Route: 058
  4. REMODULIN [Suspect]
     Active Substance: TREPROSTINIL
     Dosage: 0.027 ?G/KG, CONTINUING
     Route: 058

REACTIONS (5)
  - Malaise [Unknown]
  - Infusion site swelling [Unknown]
  - Infusion site erythema [Unknown]
  - Product dose omission [Unknown]
  - Mucous stools [Unknown]

NARRATIVE: CASE EVENT DATE: 202001
